FAERS Safety Report 5705715-0 (Version None)
Quarter: 2008Q2

REPORT INFORMATION
  Report Type: 
  Country: None (occurrence: None)
  Receive Date: 20080415
  Receipt Date: 20080407
  Transmission Date: 20081010
  Serious: Yes (Life-Threatening)
  Sender: FDA-Public Use
  Company Number: A0722659A

PATIENT
  Age: 29 Year
  Sex: Male

DRUGS (2)
  1. LAMICTAL [Suspect]
     Route: 048
  2. UNKNOWN MEDICATION [Concomitant]

REACTIONS (3)
  - APPARENT DEATH [None]
  - BLOOD TRIGLYCERIDES INCREASED [None]
  - MALAISE [None]
